FAERS Safety Report 4289873-3 (Version None)
Quarter: 2004Q1

REPORT INFORMATION
  Report Type: 
  Country: None (occurrence: None)
  Receive Date: 20040209
  Receipt Date: 20040129
  Transmission Date: 20041129
  Serious: Yes (Life-Threatening, Other)
  Sender: FDA-Public Use
  Company Number: GB-BRISTOL-MYERS SQUIBB COMPANY-12491056

PATIENT
  Age: 48 Year
  Sex: Male
  Weight: 108 kg

DRUGS (2)
  1. PRAVASTATIN SODIUM [Suspect]
     Indication: HYPERCHOLESTEROLAEMIA
     Route: 048
     Dates: start: 20030601, end: 20030714
  2. ADIZEM-XL [Concomitant]
     Indication: HYPERTENSION
     Route: 048
     Dates: end: 20030529

REACTIONS (1)
  - HYPOKALAEMIA [None]
